FAERS Safety Report 15041122 (Version 2)
Quarter: 2024Q3

REPORT INFORMATION
  Report Type: Spontaneous
  Country: AU (occurrence: AU)
  Receive Date: 20180621
  Receipt Date: 20240913
  Transmission Date: 20241017
  Serious: Yes (Life-Threatening, Other)
  Sender: RANBAXY
  Company Number: AU-SUN PHARMACEUTICAL INDUSTRIES LTD-2018RR-176134

PATIENT
  Age: 13 Year
  Sex: Female

DRUGS (3)
  1. QUETIAPINE [Suspect]
     Active Substance: QUETIAPINE
     Indication: Product used for unknown indication
     Dosage: 42 G, EXTENDED RELEASE
     Route: 048
  2. CITALOPRAM [Suspect]
     Active Substance: CITALOPRAM\CITALOPRAM HYDROBROMIDE
     Indication: Product used for unknown indication
     Dosage: 540 MG
     Route: 048
  3. RIVAROXABAN [Suspect]
     Active Substance: RIVAROXABAN
     Indication: Product used for unknown indication
     Dosage: 420 MG
     Route: 048

REACTIONS (3)
  - Poisoning [Unknown]
  - Overdose [Unknown]
  - Ileus [Unknown]
